FAERS Safety Report 20145708 (Version 1)
Quarter: 2021Q4

REPORT INFORMATION
  Report Type: Spontaneous
  Country: US (occurrence: None)
  Receive Date: 20211202
  Receipt Date: 20211202
  Transmission Date: 20220304
  Serious: No
  Sender: FDA-Public Use
  Company Number: None

PATIENT

DRUGS (2)
  1. HEPARIN [Suspect]
     Active Substance: HEPARIN SODIUM
  2. DEVICE [Suspect]
     Active Substance: DEVICE

REACTIONS (5)
  - Device failure [None]
  - Device malfunction [None]
  - Incorrect dose administered [None]
  - Drug level below therapeutic [None]
  - Troponin increased [None]
